FAERS Safety Report 18844963 (Version 1)
Quarter: 2021Q1

REPORT INFORMATION
  Report Type: Spontaneous
  Country: US (occurrence: US)
  Receive Date: 20210204
  Receipt Date: 20210204
  Transmission Date: 20210419
  Serious: No
  Sender: FDA-Public Use
  Company Number: None

PATIENT
  Age: 85 Year
  Sex: Male
  Weight: 72 kg

DRUGS (21)
  1. CASODEX 50MG [Concomitant]
  2. ABIRATERONE ACETATE. [Suspect]
     Active Substance: ABIRATERONE ACETATE
     Indication: PROSTATE CANCER
     Route: 048
     Dates: start: 20190807, end: 20210204
  3. ELIQUIS [Concomitant]
     Active Substance: APIXABAN
  4. COLACE [Concomitant]
     Active Substance: DOCUSATE SODIUM
  5. FLUOCINONIDE 0.05% [Concomitant]
     Active Substance: FLUOCINONIDE
  6. DERMAZENE 1?1% [Concomitant]
  7. TOPROL XL 200MG [Concomitant]
  8. PREDNISONE 2.5MG [Concomitant]
     Active Substance: PREDNISONE
  9. ZINC 25MG [Concomitant]
  10. LIPITOR [Concomitant]
     Active Substance: ATORVASTATIN CALCIUM
  11. FASLODEX [Concomitant]
     Active Substance: FULVESTRANT
  12. MULTIVITAMINS [Concomitant]
     Active Substance: VITAMINS
  13. LUPRON DEPOT [Concomitant]
     Active Substance: LEUPROLIDE ACETATE
  14. CALCIUM CARBONATE ? VITAMIN D 600MG?400U [Concomitant]
  15. LEXAPRO 5MG [Concomitant]
  16. ZYRTEC ALLERGY [Concomitant]
     Active Substance: CETIRIZINE HYDROCHLORIDE
  17. VITAMIN D2 400U [Concomitant]
  18. XALATAN [Concomitant]
     Active Substance: LATANOPROST
  19. LISINOPRIL 30MG [Concomitant]
     Active Substance: LISINOPRIL
  20. MIRALAX [Concomitant]
     Active Substance: POLYETHYLENE GLYCOL 3350
  21. ZOLEDRONIC ACID 4MG/100ML [Concomitant]

REACTIONS (1)
  - Hospice care [None]

NARRATIVE: CASE EVENT DATE: 20210204
